FAERS Safety Report 8120543-7 (Version None)
Quarter: 2012Q1

REPORT INFORMATION
  Report Type: 
  Country: None (occurrence: None)
  Receive Date: 20120207
  Receipt Date: 20120201
  Transmission Date: 20120608
  Serious: Yes (Other)
  Sender: FDA-Public Use
  Company Number: US-AMGEN-USASP2012006790

PATIENT
  Age: 95 Year
  Sex: Male

DRUGS (3)
  1. PROLIA [Suspect]
     Indication: PRODUCT USED FOR UNKNOWN INDICATION
     Dosage: UNK
     Dates: start: 20120119
  2. PROLIA [Suspect]
  3. HORMONES AND RELATED AGENTS [Concomitant]
     Indication: PROSTATE CANCER

REACTIONS (1)
  - METASTASES TO BONE [None]
